FAERS Safety Report 23539852 (Version 2)
Quarter: 2024Q2

REPORT INFORMATION
  Report Type: Spontaneous
  Country: US (occurrence: None)
  Receive Date: 20240219
  Receipt Date: 20240409
  Transmission Date: 20240716
  Serious: No
  Sender: FDA-Public Use
  Company Number: 2024A033947

PATIENT
  Sex: Female

DRUGS (1)
  1. SAPHNELO [Suspect]
     Active Substance: ANIFROLUMAB\ANIFROLUMAB-FNIA
     Indication: Systemic lupus erythematosus

REACTIONS (11)
  - Headache [Unknown]
  - White blood cell count decreased [Unknown]
  - Stomatitis [Unknown]
  - Asthenia [Unknown]
  - Fatigue [Unknown]
  - Immunodeficiency [Unknown]
  - Nausea [Unknown]
  - Decreased activity [Unknown]
  - Vomiting [Unknown]
  - Wrong technique in product usage process [Unknown]
  - Incorrect dose administered by device [Unknown]
